FAERS Safety Report 20771374 (Version 3)
Quarter: 2022Q2

REPORT INFORMATION
  Report Type: Other
  Country: US (occurrence: US)
  Receive Date: 20220429
  Receipt Date: 20220510
  Transmission Date: 20220721
  Serious: Yes (Other)
  Sender: FDA-Public Use
  Company Number: US-ROCHE-3085148

PATIENT
  Age: 70 Year
  Sex: Female
  Weight: 56.75 kg

DRUGS (11)
  1. DIAZEPAM [Suspect]
     Active Substance: DIAZEPAM
     Indication: Product used for unknown indication
     Route: 065
  2. OCREVUS [Suspect]
     Active Substance: OCRELIZUMAB
     Indication: Multiple sclerosis
     Route: 042
  3. ATORVASTATIN [Concomitant]
     Active Substance: ATORVASTATIN
  4. BACLOFEN [Concomitant]
     Active Substance: BACLOFEN
  5. HYDROXYZINE [Concomitant]
     Active Substance: HYDROXYZINE HYDROCHLORIDE
     Indication: Product used for unknown indication
     Route: 065
  6. VENLAFAXINE [Concomitant]
     Active Substance: VENLAFAXINE HYDROCHLORIDE
  7. PREDNISONE [Concomitant]
     Active Substance: PREDNISONE
  8. LABETALOL [Concomitant]
     Active Substance: LABETALOL\LABETALOL HYDROCHLORIDE
  9. CEPHALEXIN [Concomitant]
     Active Substance: CEPHALEXIN
  10. VISTARIL [Concomitant]
     Active Substance: HYDROXYZINE PAMOATE
  11. PREDNISONE [Concomitant]
     Active Substance: PREDNISONE

REACTIONS (23)
  - Encephalitis viral [Unknown]
  - Meningitis [Unknown]
  - Optic neuritis [Unknown]
  - Nervous system disorder [Unknown]
  - Fall [Unknown]
  - Visual impairment [Unknown]
  - Nystagmus [Unknown]
  - Muscle spasticity [Unknown]
  - Fatigue [Unknown]
  - Confusional state [Unknown]
  - Encephalitis meningococcal [Unknown]
  - Aggression [Unknown]
  - Dysuria [Unknown]
  - Asthenia [Unknown]
  - Muscle spasms [Unknown]
  - Temperature intolerance [Unknown]
  - Urticaria [Unknown]
  - Temperature intolerance [Unknown]
  - Cognitive disorder [Unknown]
  - Depression [Unknown]
  - Memory impairment [Unknown]
  - Headache [Unknown]
  - Hypoacusis [Unknown]
